FAERS Safety Report 9823423 (Version 2)
Quarter: 2014Q1

REPORT INFORMATION
  Report Type: Spontaneous
  Country: US (occurrence: US)
  Receive Date: 20140116
  Receipt Date: 20140116
  Transmission Date: 20141002
  Serious: No
  Sender: FDA-Public Use
  Company Number: US-GILEAD-2011-0035078

PATIENT
  Age: 76 Year
  Sex: Female

DRUGS (13)
  1. LETAIRIS [Suspect]
     Indication: PULMONARY HYPERTENSION
     Route: 048
     Dates: start: 20101025
  2. LETAIRIS [Suspect]
     Indication: SYSTEMIC LUPUS ERYTHEMATOSUS
  3. ATENOLOL [Concomitant]
  4. COUMADIN                           /00014802/ [Concomitant]
  5. K-DUR [Concomitant]
  6. PREDNISONE [Concomitant]
  7. PLAQUENIL                          /00072602/ [Concomitant]
  8. ALDACTONE                          /00006201/ [Concomitant]
  9. DEMADEX                            /01036501/ [Concomitant]
  10. PRILOSEC                           /00661201/ [Concomitant]
  11. ASPIRIN [Concomitant]
  12. CHOLECALCIFEROL [Concomitant]
  13. CYANOCOBALAMIN [Concomitant]

REACTIONS (2)
  - Hypotension [Unknown]
  - Constipation [Unknown]
